FAERS Safety Report 4424893-7 (Version None)
Quarter: 2004Q3

REPORT INFORMATION
  Report Type: 
  Country: None (occurrence: None)
  Receive Date: 20040809
  Receipt Date: 20040722
  Transmission Date: 20050211
  Serious: Yes (Hospitalization)
  Sender: FDA-Public Use
  Company Number: F01200402169

PATIENT
  Age: 47 Year
  Sex: Female

DRUGS (5)
  1. OXALIPLATIN  -  SOLUTION  - 200 MG [Suspect]
     Indication: COLON CANCER METASTATIC
     Dosage: 200 MG Q2W; INTRAVENOUS NOS
     Route: 042
     Dates: start: 20040713, end: 20040713
  2. FLUOROURACIL   - SOLUTION - 800 MG [Suspect]
     Dosage: 800 MG Q2W, INTRAVANOUS NOS
     Route: 042
     Dates: start: 20040713, end: 20040713
  3. LEUCOVORIN  - SOLUTION 800 MG [Suspect]
     Dosage: 800 MG Q2W; INTRAVENOUS NOS
     Route: 042
     Dates: start: 20040713, end: 20010713
  4. KYTRIL [Concomitant]
  5. DEXAMETHASONE [Concomitant]

REACTIONS (7)
  - DYSPNOEA [None]
  - HYPERHIDROSIS [None]
  - HYPERTENSION [None]
  - LARYNGOSPASM [None]
  - PERIORBITAL OEDEMA [None]
  - RESPIRATORY DISTRESS [None]
  - TACHYCARDIA [None]
